FAERS Safety Report 7985509-6 (Version None)
Quarter: 2011Q4

REPORT INFORMATION
  Report Type: 
  Country: None (occurrence: None)
  Receive Date: 20111216
  Receipt Date: 20111214
  Transmission Date: 20120403
  Serious: Yes (Other)
  Sender: FDA-Public Use
  Company Number: US-ROCHE-1017323

PATIENT
  Sex: Female
  Weight: 104.42 kg

DRUGS (2)
  1. XELODA [Suspect]
     Indication: BREAST CANCER METASTATIC
     Dosage: CYCLE: 2 WEEKS ON/1 WEEK OFF
     Route: 048
     Dates: start: 20110823, end: 20111129
  2. XELODA [Suspect]
     Dosage: CYCLE: 2 WEEKS ON/1 WEEK OFF
     Route: 048

REACTIONS (2)
  - SKIN DISORDER [None]
  - PALMAR-PLANTAR ERYTHRODYSAESTHESIA SYNDROME [None]
